FAERS Safety Report 24769147 (Version 1)
Quarter: 2024Q4

REPORT INFORMATION
  Report Type: Spontaneous
  Country: CN (occurrence: CN)
  Receive Date: 20241224
  Receipt Date: 20241224
  Transmission Date: 20250115
  Serious: Yes (Other)
  Sender: Kenvue
  Company Number: CN-KENVUE-20241206084

PATIENT

DRUGS (5)
  1. TYLENOL [Suspect]
     Active Substance: ACETAMINOPHEN
     Indication: Pain
     Dosage: 0.650 GRAM, THRICE A DAY
     Route: 048
     Dates: start: 20241208, end: 20241209
  2. TYLENOL [Suspect]
     Active Substance: ACETAMINOPHEN
     Indication: Arthralgia
  3. TYLENOL [Suspect]
     Active Substance: ACETAMINOPHEN
     Indication: Joint range of motion decreased
  4. TYLENOL [Suspect]
     Active Substance: ACETAMINOPHEN
     Indication: Nausea
  5. TYLENOL [Suspect]
     Active Substance: ACETAMINOPHEN
     Indication: Vomiting

REACTIONS (4)
  - Nausea [Recovering/Resolving]
  - Vomiting [Recovering/Resolving]
  - Epigastric discomfort [Recovering/Resolving]
  - Adverse event [Recovering/Resolving]

NARRATIVE: CASE EVENT DATE: 20241209
